FAERS Safety Report 21708616 (Version 2)
Quarter: 2023Q1

REPORT INFORMATION
  Report Type: Report from Study
  Country: CA (occurrence: CA)
  Receive Date: 20221210
  Receipt Date: 20230218
  Transmission Date: 20230418
  Serious: Yes (Hospitalization, Other)
  Sender: FDA-Public Use
  Company Number: CA-ABBVIE-4230226

PATIENT
  Age: 24 Year
  Sex: Male

DRUGS (2)
  1. HUMIRA [Suspect]
     Active Substance: ADALIMUMAB
     Indication: Colitis ulcerative
     Route: 058
     Dates: start: 20200317
  2. HUMIRA [Suspect]
     Active Substance: ADALIMUMAB
     Route: 058

REACTIONS (9)
  - Sepsis [Unknown]
  - Post procedural fistula [Unknown]
  - Postoperative abscess [Unknown]
  - Stoma site reaction [Unknown]
  - Malnutrition [Not Recovered/Not Resolved]
  - Intestinal anastomosis [Unknown]
  - Abdominal wall abscess [Unknown]
  - Stoma creation [Unknown]
  - Ileostomy [Unknown]

NARRATIVE: CASE EVENT DATE: 20220516
